FAERS Safety Report 9137664 (Version 1)
Quarter: 2013Q1

REPORT INFORMATION
  Report Type: Spontaneous
  Country: US (occurrence: US)
  Receive Date: 20130304
  Receipt Date: 20130304
  Transmission Date: 20140127
  Serious: No
  Sender: FDA-Public Use
  Company Number: US-ABBOTT-12P-163-0926077-00

PATIENT
  Age: 60 Year
  Sex: Male
  Weight: 164.8 kg

DRUGS (18)
  1. ANDROGEL 1% [Suspect]
     Indication: BLOOD TESTOSTERONE DECREASED
     Dosage: 5 GRAM PACKETS
     Route: 061
     Dates: start: 20120412
  2. COUMADIN [Concomitant]
     Indication: ATRIAL FIBRILLATION
  3. COUMADIN [Concomitant]
     Indication: DEEP VEIN THROMBOSIS
  4. OPANA [Concomitant]
     Indication: PAIN
  5. DILTIAZEM [Concomitant]
     Indication: CARDIOVASCULAR DISORDER
  6. VYTORIN [Concomitant]
     Indication: BLOOD CHOLESTEROL
  7. DIGOXIN [Concomitant]
     Indication: CARDIAC DISORDER
  8. ASPIRIN [Concomitant]
     Indication: ANTICOAGULANT THERAPY
  9. ATENOLOL [Concomitant]
     Indication: BLOOD PRESSURE
  10. LYRICA [Concomitant]
     Indication: NEUROPATHY PERIPHERAL
  11. TRICOR [Concomitant]
     Indication: BLOOD TRIGLYCERIDES
  12. PRILOSEC [Concomitant]
     Indication: GASTROOESOPHAGEAL REFLUX DISEASE
  13. ATIVAN [Concomitant]
     Indication: INSOMNIA
  14. VITAMIN D [Concomitant]
     Indication: VITAMIN SUPPLEMENTATION
  15. HUMALOG [Concomitant]
     Indication: DIABETES MELLITUS
  16. LANTUS [Concomitant]
     Indication: DIABETES MELLITUS
  17. FLOVENT [Concomitant]
     Indication: CHRONIC OBSTRUCTIVE PULMONARY DISEASE
  18. ALBUTEROL W/IPRATROPIUM [Concomitant]
     Indication: CHRONIC OBSTRUCTIVE PULMONARY DISEASE

REACTIONS (1)
  - Application site erythema [Not Recovered/Not Resolved]
